FAERS Safety Report 12621843 (Version 1)
Quarter: 2016Q3

REPORT INFORMATION
  Report Type: Spontaneous
  Country: US (occurrence: US)
  Receive Date: 20160804
  Receipt Date: 20160804
  Transmission Date: 20161109
  Serious: Yes (Hospitalization, Other)
  Sender: FDA-Public Use
  Company Number: US-NOVOPROD-503543

PATIENT
  Age: 70 Year
  Sex: Female
  Weight: 90.7 kg

DRUGS (1)
  1. NOVOLOG [Suspect]
     Active Substance: INSULIN ASPART
     Indication: TYPE 2 DIABETES MELLITUS
     Dosage: SLIDING SCALE
     Route: 058
     Dates: start: 2000, end: 200011

REACTIONS (5)
  - Blood glucose increased [Unknown]
  - Blindness [Not Recovered/Not Resolved]
  - Diabetic hyperglycaemic coma [Recovered/Resolved with Sequelae]
  - Renal failure [Recovered/Resolved]
  - Multiple organ dysfunction syndrome [Recovered/Resolved]

NARRATIVE: CASE EVENT DATE: 2000
